FAERS Safety Report 12056638 (Version 15)
Quarter: 2017Q4

REPORT INFORMATION
  Report Type: Report from Study
  Country: US (occurrence: US)
  Receive Date: 20160209
  Receipt Date: 20171222
  Transmission Date: 20180320
  Serious: Yes (Hospitalization, Other)
  Sender: FDA-Public Use
  Company Number: US-ACTELION-A-US2015-128038

PATIENT
  Age: 70 Year
  Sex: Male
  Weight: 66.67 kg

DRUGS (28)
  1. VELETRI [Suspect]
     Active Substance: EPOPROSTENOL
     Dosage: 31.9 NG/KG, PER MIN
     Route: 042
  2. IRON [Concomitant]
     Active Substance: IRON
     Dosage: 325 MG, TID
     Route: 048
  3. LEVOTHYROXINE. [Concomitant]
     Active Substance: LEVOTHYROXINE
     Dosage: 50 MCG, QD
     Route: 048
  4. LETAIRIS [Concomitant]
     Active Substance: AMBRISENTAN
     Dosage: 10 MG, UNK
     Route: 048
  5. ATORVASTATIN [Concomitant]
     Active Substance: ATORVASTATIN
     Dosage: 10 MG, UNK
     Route: 048
  6. NEXIUM [Concomitant]
     Active Substance: ESOMEPRAZOLE MAGNESIUM
     Dosage: 40 MG, QD
     Route: 048
  7. RANITIDINE. [Concomitant]
     Active Substance: RANITIDINE
  8. SPIRONOLACTONE. [Concomitant]
     Active Substance: SPIRONOLACTONE
  9. CHOLECALCIFEROL [Concomitant]
     Active Substance: CHOLECALCIFEROL
     Dosage: 1000 IU, QD
     Route: 048
  10. OXYGEN. [Concomitant]
     Active Substance: OXYGEN
     Dosage: 3-4 L/MIN, UNK
  11. AZITHROMYCIN ANHYDROUS. [Concomitant]
     Active Substance: AZITHROMYCIN ANHYDROUS
     Dosage: 3 X WEEK
  12. BUMETANIDE. [Concomitant]
     Active Substance: BUMETANIDE
  13. VELETRI [Suspect]
     Active Substance: EPOPROSTENOL
     Dosage: 30.7 NG/KG, PER MIN
     Route: 042
  14. MIRTAZAPINE. [Concomitant]
     Active Substance: MIRTAZAPINE
     Dosage: 15 MG, QPM
     Route: 048
  15. VELETRI [Suspect]
     Active Substance: EPOPROSTENOL
     Dosage: 10 NG/KG, PER MIN
     Route: 042
     Dates: start: 20151118
  16. VELETRI [Suspect]
     Active Substance: EPOPROSTENOL
     Dosage: 32.5 NG/KG, PER MIN
     Route: 042
  17. METOPROLOL. [Concomitant]
     Active Substance: METOPROLOL
  18. ASA [Concomitant]
     Active Substance: ASPIRIN
     Dosage: 81 MG, QD
     Route: 048
  19. DOXEPIN [Concomitant]
     Active Substance: DOXEPIN
     Dosage: 10 MG, QD
     Route: 048
  20. GABAPENTIN. [Concomitant]
     Active Substance: GABAPENTIN
  21. MYCOPHENOLATE [Concomitant]
     Active Substance: MYCOPHENOLIC ACID
  22. VELETRI [Suspect]
     Active Substance: EPOPROSTENOL
     Indication: PULMONARY ARTERIAL HYPERTENSION
     Dosage: 36.1 NG/KG, PER MIN
     Route: 042
     Dates: start: 201511
  23. LETAIRIS [Concomitant]
     Active Substance: AMBRISENTAN
     Dosage: 5 MG, QD
     Route: 048
  24. SILDENAFIL. [Concomitant]
     Active Substance: SILDENAFIL
     Indication: PULMONARY ARTERIAL HYPERTENSION
     Dosage: 10 MG, TID
     Route: 048
  25. ATORVASTATIN [Concomitant]
     Active Substance: ATORVASTATIN
     Dosage: 20 MG, QD
     Route: 048
  26. BUMEX [Concomitant]
     Active Substance: BUMETANIDE
     Dosage: 0.5-2.5 MG, PRN
     Route: 048
  27. LEVOTHYROXINE. [Concomitant]
     Active Substance: LEVOTHYROXINE
     Dosage: 75 MCG, QD
     Route: 048
  28. CELLCEPT [Concomitant]
     Active Substance: MYCOPHENOLATE MOFETIL\MYCOPHENOLATE MOFETIL HYDROCHLORIDE
     Dosage: 1000 MG, BID
     Route: 048

REACTIONS (27)
  - Asthenia [Unknown]
  - Dyspnoea [Unknown]
  - Systemic scleroderma [Unknown]
  - Pneumonia [Unknown]
  - Respiratory failure [Unknown]
  - Headache [Unknown]
  - Dyspnoea exertional [Unknown]
  - Back pain [Not Recovered/Not Resolved]
  - Pulmonary arterial hypertension [Unknown]
  - Pulmonary fibrosis [Unknown]
  - Interstitial lung disease [Unknown]
  - Transfusion [Unknown]
  - Endotracheal intubation [Unknown]
  - Nausea [Unknown]
  - Influenza [Unknown]
  - Pneumonia aspiration [Recovered/Resolved]
  - Insomnia [Unknown]
  - Pain in jaw [Unknown]
  - Abdominal discomfort [Recovered/Resolved]
  - Complication associated with device [Unknown]
  - Haemoglobin decreased [Unknown]
  - Device alarm issue [Unknown]
  - Pruritus generalised [Unknown]
  - Vomiting [Not Recovered/Not Resolved]
  - Abdominal distension [Unknown]
  - Gastrointestinal haemorrhage [Unknown]
  - Septic shock [Unknown]

NARRATIVE: CASE EVENT DATE: 20160112
